FAERS Safety Report 25770242 (Version 2)
Quarter: 2025Q3

REPORT INFORMATION
  Report Type: Report from Study
  Country: US (occurrence: US)
  Receive Date: 20250907
  Receipt Date: 20250922
  Transmission Date: 20251021
  Serious: Yes (Other)
  Sender: ALEXION PHARMACEUTICALS
  Company Number: US-AstraZeneca-CH-00942427A

PATIENT
  Age: 48 Year
  Sex: Female
  Weight: 79.378 kg

DRUGS (2)
  1. TEZEPELUMAB [Suspect]
     Active Substance: TEZEPELUMAB
     Indication: Asthma
     Dosage: 210 MILLIGRAM, Q4W
  2. TEZEPELUMAB [Suspect]
     Active Substance: TEZEPELUMAB

REACTIONS (17)
  - Sjogren^s syndrome [Unknown]
  - Cough [Unknown]
  - Exercise tolerance decreased [Unknown]
  - Dyspnoea [Unknown]
  - Oral surgery [Unknown]
  - Chest discomfort [Unknown]
  - Fatigue [Unknown]
  - Hand dermatitis [Unknown]
  - Insurance issue [Unknown]
  - COVID-19 [Unknown]
  - Illness [Unknown]
  - Influenza [Unknown]
  - Pharyngitis [Unknown]
  - Productive cough [Unknown]
  - Activities of daily living decreased [Unknown]
  - Nasopharyngitis [Unknown]
  - Pyrexia [Unknown]
